FAERS Safety Report 20055625 (Version 3)
Quarter: 2023Q1

REPORT INFORMATION
  Report Type: Report from Study
  Country: BR (occurrence: BR)
  Receive Date: 20211110
  Receipt Date: 20230320
  Transmission Date: 20230417
  Serious: Yes (Other)
  Sender: FDA-Public Use
  Company Number: BR-JNJFOC-20211117648

PATIENT
  Age: 4 Decade
  Sex: Male

DRUGS (1)
  1. SIMPONI [Suspect]
     Active Substance: GOLIMUMAB
     Indication: Ankylosing spondylitis
     Route: 058
     Dates: end: 201909

REACTIONS (2)
  - Osteomyelitis [Unknown]
  - Infection [Unknown]

NARRATIVE: CASE EVENT DATE: 20190101
